FAERS Safety Report 7067910-0 (Version None)
Quarter: 2010Q4

REPORT INFORMATION
  Report Type: 
  Country: None (occurrence: None)
  Receive Date: 20101028
  Receipt Date: 20101015
  Transmission Date: 20110411
  Serious: Yes (Hospitalization)
  Sender: FDA-Public Use
  Company Number: US-ELI_LILLY_AND_COMPANY-US201010003994

PATIENT
  Sex: Male

DRUGS (7)
  1. ZYPREXA [Suspect]
     Indication: SCHIZOPHRENIA, PARANOID TYPE
     Dosage: 10 MG, UNK
  2. ZYPREXA RELPREVV [Concomitant]
     Indication: SCHIZOPHRENIA, PARANOID TYPE
     Dosage: 300 MG, UNK
     Dates: start: 20101015
  3. VALIUM [Concomitant]
     Dosage: 10 MG, UNK
  4. CLONIDINE [Concomitant]
     Dosage: 0.1 MG, 3/D
  5. METOPROLOL [Concomitant]
     Dosage: 200 MG, UNK
  6. PRILOSEC [Concomitant]
     Dosage: 40 MG, UNK
  7. LISINOPRIL [Concomitant]
     Dosage: 1 D/F, UNK

REACTIONS (6)
  - AGITATION [None]
  - AKATHISIA [None]
  - FATIGUE [None]
  - INSOMNIA [None]
  - PSYCHOTIC DISORDER [None]
  - SOMNOLENCE [None]
